FAERS Safety Report 11748003 (Version 3)
Quarter: 2016Q1

REPORT INFORMATION
  Report Type: Spontaneous
  Country: US (occurrence: US)
  Receive Date: 20151117
  Receipt Date: 20160201
  Transmission Date: 20160525
  Serious: Yes (Hospitalization, Other)
  Sender: FDA-Public Use
  Company Number: US-GLAXOSMITHKLINE-US2015GSK155280

PATIENT
  Sex: Female

DRUGS (1)
  1. BENLYSTA [Suspect]
     Active Substance: BELIMUMAB
     Indication: SYSTEMIC LUPUS ERYTHEMATOSUS
     Dosage: UNK
     Dates: start: 201507

REACTIONS (7)
  - Malaise [Unknown]
  - Immunosuppression [Unknown]
  - Infection [Unknown]
  - Impaired work ability [Unknown]
  - Sepsis [Unknown]
  - Bacterial infection [Unknown]
  - Surgery [Unknown]

NARRATIVE: CASE EVENT DATE: 2015
